FAERS Safety Report 11803658 (Version 1)
Quarter: 2015Q4

REPORT INFORMATION
  Report Type: Report from Study
  Country: BR (occurrence: BR)
  Receive Date: 20151204
  Receipt Date: 20151204
  Transmission Date: 20160305
  Serious: Yes (Death, Hospitalization)
  Sender: FDA-Public Use
  Company Number: PHHY2015BR158706

PATIENT
  Sex: Male
  Weight: 74 kg

DRUGS (1)
  1. ONBREZ BREEZHALER [Suspect]
     Active Substance: INDACATEROL
     Indication: DYSPNOEA
     Dosage: 300 UG, QD
     Route: 065

REACTIONS (5)
  - Off label use [Unknown]
  - Infarction [Unknown]
  - Myocardial infarction [Fatal]
  - Cardiac arrest [Fatal]
  - Cardiac disorder [Unknown]
